FAERS Safety Report 7295590-8 (Version None)
Quarter: 2011Q1

REPORT INFORMATION
  Report Type: 
  Country: None (occurrence: None)
  Receive Date: 20110216
  Receipt Date: 20101227
  Transmission Date: 20110831
  Serious: No
  Sender: FDA-Public Use
  Company Number: US-ABBOTT-10P-163-0693684-00

PATIENT
  Sex: Male
  Weight: 83.99 kg

DRUGS (6)
  1. SIMCOR [Suspect]
     Indication: HYPERLIPIDAEMIA
     Dosage: 1000/20MG AT BEDTIME
     Dates: start: 20091201
  2. LOVASTATIN [Concomitant]
     Indication: PRODUCT USED FOR UNKNOWN INDICATION
  3. ASPIRIN [Concomitant]
     Indication: PRODUCT USED FOR UNKNOWN INDICATION
  4. POTASSIUM [Concomitant]
     Indication: PRODUCT USED FOR UNKNOWN INDICATION
  5. 2 UNKNOWN MEDICATIONS [Concomitant]
     Indication: BLOOD PRESSURE
  6. CHEMOTHERAPEUTICS [Suspect]
     Indication: MULTIPLE MYELOMA

REACTIONS (4)
  - FATIGUE [None]
  - NEUROPATHY PERIPHERAL [None]
  - PRURITUS [None]
  - FLUSHING [None]
